FAERS Safety Report 13261201 (Version 2)
Quarter: 2017Q1

REPORT INFORMATION
  Report Type: Spontaneous
  Country: FI (occurrence: FI)
  Receive Date: 20170222
  Receipt Date: 20170224
  Transmission Date: 20170428
  Serious: Yes (Other)
  Sender: FDA-Public Use
  Company Number: FI-SA-2017SA018686

PATIENT
  Sex: Male

DRUGS (2)
  1. VICTOZA [Suspect]
     Active Substance: LIRAGLUTIDE
     Dosage: SOLUTION FOR INJECTION IN?PRE-FILLED PEN
     Route: 065
  2. AMARYL [Suspect]
     Active Substance: GLIMEPIRIDE
     Dosage: DOSE- 1 MG IN THE MORNING AND 1 MG IN THE EVENING, IF NEEDED 2 TIMES 1 MG IN THE MORNING
     Route: 065

REACTIONS (12)
  - Blood pressure increased [Unknown]
  - Laboratory test abnormal [Recovered/Resolved]
  - Pancreatitis [Unknown]
  - Jaundice [Unknown]
  - Abdominal pain [Unknown]
  - Blood glucose increased [Recovered/Resolved]
  - Blood pressure decreased [Unknown]
  - Vomiting [Unknown]
  - Abdominal distension [Unknown]
  - Nausea [Unknown]
  - Diarrhoea [Unknown]
  - Pain [Unknown]
